FAERS Safety Report 10228460 (Version 1)
Quarter: 2014Q2

REPORT INFORMATION
  Report Type: Spontaneous
  Country: FR (occurrence: None)
  Receive Date: 20140502
  Receipt Date: 20140502
  Transmission Date: 20141212
  Serious: No
  Sender: FDA-Public Use
  Company Number: 2013-FR-004580

PATIENT
  Sex: 0

DRUGS (1)
  1. ERWINASE [Suspect]
     Dosage: UNK

REACTIONS (1)
  - Drug hypersensitivity [None]
